FAERS Safety Report 10086871 (Version 1)
Quarter: 2014Q2

REPORT INFORMATION
  Report Type: Spontaneous
  Country: US (occurrence: US)
  Receive Date: 20140417
  Receipt Date: 20140417
  Transmission Date: 20141212
  Serious: Yes (Other)
  Sender: FDA-Public Use
  Company Number: US-PFIZER INC-2014106495

PATIENT
  Sex: Female

DRUGS (1)
  1. CHANTIX [Suspect]
     Dosage: UNK

REACTIONS (6)
  - Intestinal obstruction [Unknown]
  - Constipation [Unknown]
  - Blister [Unknown]
  - Skin exfoliation [Unknown]
  - Pruritus [Unknown]
  - Skin disorder [Unknown]
